FAERS Safety Report 10022230 (Version 1)
Quarter: 2014Q1

REPORT INFORMATION
  Report Type: Spontaneous
  Country: US (occurrence: None)
  Receive Date: 20140318
  Receipt Date: 20140318
  Transmission Date: 20141002
  Serious: No
  Sender: FDA-Public Use
  Company Number: None

PATIENT
  Age: 59 Year
  Sex: Female
  Weight: 62.14 kg

DRUGS (1)
  1. BOTOX [Suspect]
     Indication: MIGRAINE
     Dosage: 200 UNITS 7 MUSCLE INJECTIONS IM
     Route: 030
     Dates: start: 20140114

REACTIONS (8)
  - Sciatica [None]
  - Urinary incontinence [None]
  - Nerve compression [None]
  - Asthma [None]
  - Neck pain [None]
  - Gait disturbance [None]
  - Supraventricular extrasystoles [None]
  - Cardiac disorder [None]
